FAERS Safety Report 7392687-9 (Version None)
Quarter: 2011Q2

REPORT INFORMATION
  Report Type: 
  Country: None (occurrence: None)
  Receive Date: 20110404
  Receipt Date: 20110324
  Transmission Date: 20111010
  Serious: Yes (Other)
  Sender: FDA-Public Use
  Company Number: US-BAXTER-2011BH008114

PATIENT
  Age: 49 Year
  Sex: Male

DRUGS (4)
  1. HEPARIN SODIUM [Concomitant]
     Indication: THROMBOSIS PROPHYLAXIS
     Route: 065
  2. HYDROMORPHONE HCL [Suspect]
     Route: 065
  3. PIPERACILLIN AND TAZOBACTAM [Concomitant]
     Indication: PRODUCT USED FOR UNKNOWN INDICATION
     Route: 042
  4. HYDROMORPHONE HCL [Suspect]
     Indication: POSTOPERATIVE ANALGESIA
     Route: 065

REACTIONS (1)
  - SINUS ARREST [None]
